FAERS Safety Report 5489865-2 (Version None)
Quarter: 2007Q4

REPORT INFORMATION
  Report Type: 
  Country: None (occurrence: None)
  Receive Date: 20071018
  Receipt Date: 20071006
  Transmission Date: 20080405
  Serious: No
  Sender: FDA-Public Use
  Company Number: CH-PFIZER INC-2007074022

PATIENT
  Age: 75 Year
  Sex: Male

DRUGS (1)
  1. LYRICA [Suspect]
     Route: 048

REACTIONS (1)
  - HYPOTENSION [None]
